FAERS Safety Report 9821906 (Version 3)
Quarter: 2014Q1

REPORT INFORMATION
  Report Type: Report from Study
  Country: NL (occurrence: NL)
  Receive Date: 20140116
  Receipt Date: 20140212
  Transmission Date: 20141002
  Serious: Yes (Hospitalization)
  Sender: FDA-Public Use
  Company Number: PHHY2014NL003850

PATIENT
  Sex: Female

DRUGS (2)
  1. SANDOSTATIN LAR [Suspect]
     Indication: NEUROENDOCRINE TUMOUR
     Dosage: 30 MG PER 2 ML, ONCE EVERY 3 WEEKS
     Route: 030
  2. SANDOSTATIN LAR [Suspect]
     Dosage: 30 MG PER 2 ML, ONCE EVERY 2 WEEKSUNK
     Route: 030

REACTIONS (4)
  - Erythema [Unknown]
  - Skin discolouration [Unknown]
  - Flushing [Unknown]
  - Drug ineffective [Not Recovered/Not Resolved]
